FAERS Safety Report 7278262 (Version 3)
Quarter: 2012Q4

REPORT INFORMATION
  Report Type: Report from Study
  Country: GB (occurrence: US)
  Receive Date: 20100214
  Receipt Date: 20121223
  Transmission Date: 20130627
  Serious: Yes (Death, Hospitalization, Other)
  Sender: FDA-Public Use
  Company Number: US-BRISTOL-MYERS SQUIBB COMPANY-14955942

PATIENT
  Age: 41 Year
  Sex: Female
  Weight: 72.3 kg

DRUGS (10)
  1. DASATINIB [Suspect]
     Indication: GLIOBLASTOMA MULTIFORME
     Route: 048
     Dates: start: 20091209, end: 20100113
  2. ERLOTINIB [Suspect]
     Indication: GLIOBLASTOMA MULTIFORME
     Route: 048
     Dates: start: 20091209, end: 20100113
  3. DECADRON [Concomitant]
     Route: 048
  4. IMODIUM ADVANCED [Concomitant]
     Route: 048
  5. LEVETIRACETAM [Concomitant]
     Route: 048
  6. LOVENOX [Concomitant]
     Route: 058
  7. LOVENOX [Concomitant]
     Route: 058
  8. ONDANSETRON [Concomitant]
     Dosage: Tablet
     Route: 048
  9. TRILEPTAL [Concomitant]
     Route: 048
  10. ZANTAC [Concomitant]
     Route: 048

REACTIONS (7)
  - Malignant neoplasm progression [Fatal]
  - Convulsion [Fatal]
  - Alanine aminotransferase increased [Unknown]
  - Aspartate aminotransferase increased [Unknown]
  - Hyperkalaemia [Unknown]
  - Haemoglobin decreased [Unknown]
  - Blood creatinine increased [Unknown]
